FAERS Safety Report 10559648 (Version 2)
Quarter: 2014Q4

REPORT INFORMATION
  Report Type: Spontaneous
  Country: SE (occurrence: SE)
  Receive Date: 20141103
  Receipt Date: 20141212
  Transmission Date: 20150529
  Serious: Yes (Other)
  Sender: FDA-Public Use
  Company Number: SE-AMGEN-SWESP2014083807

PATIENT
  Age: 58 Year
  Sex: Female
  Weight: 62 kg

DRUGS (1)
  1. PROLIA [Suspect]
     Active Substance: DENOSUMAB
     Indication: OSTEOPOROSIS POSTMENOPAUSAL
     Dosage: 60 MG, Q6MO
     Route: 058
     Dates: start: 20120919

REACTIONS (4)
  - Chondrosarcoma [Unknown]
  - Enchondroma [Unknown]
  - Injection site pain [Recovered/Resolved]
  - Bone cancer [Unknown]

NARRATIVE: CASE EVENT DATE: 20140701
